FAERS Safety Report 4481993-3 (Version None)
Quarter: 2004Q4

REPORT INFORMATION
  Report Type: 
  Country: None (occurrence: None)
  Receive Date: 20041020
  Receipt Date: 20041007
  Transmission Date: 20050328
  Serious: No
  Sender: FDA-Public Use
  Company Number: 430002L04DEU

PATIENT
  Age: 45 Year
  Sex: Female

DRUGS (1)
  1. NOVANTRONE [Suspect]
     Indication: MULTIPLE SCLEROSIS
     Dosage: 1 IN 1 DAYS

REACTIONS (6)
  - ACUTE MYELOID LEUKAEMIA [None]
  - ALLOGENIC BONE MARROW TRANSPLANTATION THERAPY [None]
  - CHROMOSOME ABNORMALITY [None]
  - CONDITION AGGRAVATED [None]
  - MULTIPLE SCLEROSIS [None]
  - TRISOMY 11 [None]
